FAERS Safety Report 7987207-1 (Version None)
Quarter: 2011Q4

REPORT INFORMATION
  Report Type: 
  Country: None (occurrence: None)
  Receive Date: 20111216
  Receipt Date: 20111206
  Transmission Date: 20120403
  Serious: Yes (Other)
  Sender: FDA-Public Use
  Company Number: JP-PFIZER INC-2011304580

PATIENT
  Age: 85 Year
  Sex: Female

DRUGS (1)
  1. CELECOXIB [Suspect]
     Route: 048

REACTIONS (3)
  - ABNORMAL BEHAVIOUR [None]
  - HALLUCINATION [None]
  - AGITATION [None]
